FAERS Safety Report 4974420-0 (Version None)
Quarter: 2006Q2

REPORT INFORMATION
  Report Type: 
  Country: None (occurrence: None)
  Receive Date: 20060410
  Receipt Date: 20060330
  Transmission Date: 20061013
  Serious: Yes (Hospitalization)
  Sender: FDA-Public Use
  Company Number: HQWYE583530MAR06

PATIENT
  Age: 90 Year
  Sex: Female

DRUGS (8)
  1. PANTOPRAZOLE SODIUM [Suspect]
     Dosage: 40 MG 1X PER 1 DAY
     Route: 048
     Dates: end: 20051220
  2. ACEBUTOLOL HCL [Concomitant]
     Indication: ESSENTIAL HYPERTENSION
     Dosage: SEE IMAGE
     Route: 048
     Dates: start: 19750101, end: 20051216
  3. ACEBUTOLOL HCL [Concomitant]
     Indication: ESSENTIAL HYPERTENSION
     Dosage: SEE IMAGE
     Route: 048
     Dates: start: 20051216
  4. ALDACTONE [Suspect]
     Indication: ESSENTIAL HYPERTENSION
     Dosage: 75 MG 1X PER 1 DAY
     Route: 048
     Dates: start: 19750101, end: 20051222
  5. KARDEGIC (ACETYLSALICYLATE LYSINE, ) [Suspect]
     Indication: MYOCARDIAL ISCHAEMIA
     Dosage: 75 MG 1X PER 1 DAY
     Route: 048
  6. TRIVASTAL (PIRIBEDIL, ) [Suspect]
     Indication: COGNITIVE DISORDER
     Dosage: 50 MG 1X PER 1 DAY
     Route: 048
     Dates: end: 20051222
  7. TRIVASTAL (PIRIBEDIL, ) [Suspect]
     Indication: NERVOUS SYSTEM DISORDER
     Dosage: 50 MG 1X PER 1 DAY
     Route: 048
     Dates: end: 20051222
  8. TRIVASTAL (PIRIBEDIL, ) [Suspect]
     Indication: SENSORY DISTURBANCE
     Dosage: 50 MG 1X PER 1 DAY
     Route: 048
     Dates: end: 20051222

REACTIONS (9)
  - AGITATION [None]
  - CONFUSIONAL STATE [None]
  - DEHYDRATION [None]
  - DUODENAL ULCER [None]
  - ESCHERICHIA URINARY TRACT INFECTION [None]
  - GASTRITIS [None]
  - HAEMOGLOBIN DECREASED [None]
  - HALLUCINATION, VISUAL [None]
  - PYREXIA [None]
